FAERS Safety Report 23301412 (Version 1)
Quarter: 2023Q4

REPORT INFORMATION
  Report Type: Report from Study
  Country: US (occurrence: US)
  Receive Date: 20231215
  Receipt Date: 20231215
  Transmission Date: 20240110
  Serious: Yes (Hospitalization, Other)
  Sender: FDA-Public Use
  Company Number: US-TAKEDA-US201928013

PATIENT
  Age: 63 Year
  Sex: Female
  Weight: 52 kg

DRUGS (10)
  1. TEDUGLUTIDE [Suspect]
     Active Substance: TEDUGLUTIDE
     Indication: Short-bowel syndrome
     Dosage: 3 MILLIGRAM, (TED DAILY DOSE 0.05 MG KG, 7 TED DOSE PER WEEK)
     Route: 042
     Dates: start: 20181211
  2. TEDUGLUTIDE [Suspect]
     Active Substance: TEDUGLUTIDE
     Indication: Short-bowel syndrome
     Dosage: 3 MILLIGRAM, (TED DAILY DOSE 0.05 MG KG, 7 TED DOSE PER WEEK)
     Route: 042
     Dates: start: 20181211
  3. TEDUGLUTIDE [Suspect]
     Active Substance: TEDUGLUTIDE
     Indication: Short-bowel syndrome
     Dosage: 3 MILLIGRAM, (TED DAILY DOSE 0.05 MG KG, 7 TED DOSE PER WEEK)
     Route: 042
     Dates: start: 20181211
  4. TEDUGLUTIDE [Suspect]
     Active Substance: TEDUGLUTIDE
     Indication: Short-bowel syndrome
     Dosage: 3 MILLIGRAM, (TED DAILY DOSE 0.05 MG KG, 7 TED DOSE PER WEEK)
     Route: 042
     Dates: start: 20181211
  5. ZINC SULFATE [Concomitant]
     Active Substance: ZINC SULFATE
     Indication: Zinc deficiency
     Dosage: 220 MILLIGRAM, QD
     Route: 048
     Dates: start: 20190418
  6. OXYCODONE [Concomitant]
     Active Substance: OXYCODONE
     Indication: Pain
     Dosage: 10 MILLIGRAM
     Route: 048
     Dates: start: 20190417
  7. KENALOG [Concomitant]
     Active Substance: TRIAMCINOLONE ACETONIDE
     Indication: Pain prophylaxis
     Route: 065
  8. LIDOCAINE [Concomitant]
     Active Substance: LIDOCAINE
     Indication: Pain
     Dosage: UNK UNK, SINGLE
     Route: 058
     Dates: start: 20190406, end: 20190406
  9. TRIAMCINOLONE [Concomitant]
     Active Substance: TRIAMCINOLONE
     Indication: Pain
     Dosage: UNK UNK, SINGLE
     Route: 058
     Dates: start: 20190406, end: 20190406
  10. TRIAMCINOLONE [Concomitant]
     Active Substance: TRIAMCINOLONE
     Indication: Swelling

REACTIONS (3)
  - Intra-abdominal haematoma [Recovered/Resolved]
  - Diarrhoea [Recovered/Resolved]
  - Abdominal wall haematoma [Recovered/Resolved]

NARRATIVE: CASE EVENT DATE: 20181211
